FAERS Safety Report 8518684-5 (Version None)
Quarter: 2012Q3

REPORT INFORMATION
  Report Type: 
  Country: None (occurrence: None)
  Receive Date: 20120718
  Receipt Date: 20110718
  Transmission Date: 20120928
  Serious: Yes (Other)
  Sender: FDA-Public Use
  Company Number: US-BRISTOL-MYERS SQUIBB COMPANY-15809742

PATIENT
  Age: 71 Year
  Sex: Female
  Weight: 73 kg

DRUGS (3)
  1. COUMADIN [Suspect]
     Indication: THROMBOSIS
     Dosage: VARYING DOSAGE ADJUSTMENTS
     Route: 048
     Dates: start: 20100401, end: 20101201
  2. WARFARIN SODIUM [Suspect]
     Indication: THROMBOSIS
     Dates: start: 20100401
  3. SYNTHROID [Concomitant]

REACTIONS (1)
  - PARAESTHESIA [None]
